FAERS Safety Report 23185302 (Version 1)
Quarter: 2023Q4

REPORT INFORMATION
  Report Type: Spontaneous
  Country: IT (occurrence: IT)
  Receive Date: 20231115
  Receipt Date: 20231115
  Transmission Date: 20240110
  Serious: Yes (Hospitalization)
  Sender: FDA-Public Use
  Company Number: IT-MYLANLABS-2023M1120205

PATIENT
  Age: 18 Year
  Sex: Male

DRUGS (8)
  1. LINEZOLID [Suspect]
     Active Substance: LINEZOLID
     Indication: Staphylococcal bacteraemia
     Dosage: 600 MILLIGRAM, BID (600MG TIMES 2/ DAY)
     Route: 065
     Dates: start: 201807, end: 201808
  2. LINEZOLID [Suspect]
     Active Substance: LINEZOLID
     Indication: Septic shock
     Dosage: UNK
     Route: 065
     Dates: start: 20181031, end: 20181121
  3. AMIKACIN [Concomitant]
     Active Substance: AMIKACIN
     Indication: Bacterial infection
     Dosage: 1 GRAM, QD
     Route: 065
     Dates: start: 2018, end: 201808
  4. COLISTIN [Concomitant]
     Active Substance: COLISTIN
     Indication: Bacterial infection
     Dosage: UNK, QD (DOSE: 4.5 MIU X 2)
     Route: 065
     Dates: start: 2018, end: 201808
  5. MEROPENEM [Concomitant]
     Active Substance: MEROPENEM
     Indication: Bacterial infection
     Dosage: UNK, QD; DOSE: 1 G X 3
     Route: 065
     Dates: start: 2018, end: 201808
  6. MEROPENEM [Concomitant]
     Active Substance: MEROPENEM
     Indication: Septic shock
     Dosage: UNK, QD; DOSE: 1 G X 3
     Route: 065
     Dates: start: 20181031
  7. VANCOMYCIN [Concomitant]
     Active Substance: VANCOMYCIN
     Indication: Staphylococcal bacteraemia
     Dosage: UNK UNK, QD, DOSE: 1G X 2
     Route: 065
     Dates: start: 2018, end: 201808
  8. GENTAMICIN [Concomitant]
     Active Substance: GENTAMICIN
     Indication: Septic shock
     Dosage: 240 MILLIGRAM
     Route: 065
     Dates: start: 20181031

REACTIONS (1)
  - Drug resistance [Unknown]
